FAERS Safety Report 5361542-8 (Version None)
Quarter: 2007Q2

REPORT INFORMATION
  Report Type: 
  Country: None (occurrence: None)
  Receive Date: 20070619
  Receipt Date: 20070611
  Transmission Date: 20071010
  Serious: Yes (Other)
  Sender: FDA-Public Use
  Company Number: PHFR2007GB01391

PATIENT
  Age: 66 Year
  Sex: Male

DRUGS (2)
  1. CLOZARIL [Suspect]
     Indication: SCHIZOPHRENIA
     Dosage: 200MG MANE AND 250MG NOCTE
     Route: 048
     Dates: start: 19980629
  2. VENLAFAXINE HCL [Concomitant]
     Indication: DEPRESSION
     Dosage: 225MG/DAY
     Route: 048
     Dates: start: 19980101

REACTIONS (2)
  - LYMPHOCYTE COUNT DECREASED [None]
  - LYMPHOCYTE PERCENTAGE INCREASED [None]
